FAERS Safety Report 9486974 (Version 1)
Quarter: 2013Q3

REPORT INFORMATION
  Report Type: Spontaneous
  Country: US (occurrence: US)
  Receive Date: 20130829
  Receipt Date: 20130829
  Transmission Date: 20140515
  Serious: Yes (Hospitalization)
  Sender: FDA-Public Use
  Company Number: US-GLAXOSMITHKLINE-A1038965A

PATIENT
  Age: 70 Year
  Sex: Male

DRUGS (12)
  1. VOTRIENT [Suspect]
     Indication: RENAL CANCER
     Dosage: 400MG TWICE PER DAY
     Route: 048
     Dates: start: 20130320
  2. TORISEL [Suspect]
     Indication: RENAL CANCER
     Route: 042
  3. COUMADIN [Concomitant]
  4. SIMVASTATIN [Concomitant]
  5. FUROSEMIDE [Concomitant]
  6. PAXIL [Concomitant]
  7. METFORMIN [Concomitant]
  8. ALLOPURINOL [Concomitant]
  9. DULCOLAX [Concomitant]
  10. FUROSEMIDE [Concomitant]
  11. TRAZODONE [Concomitant]
  12. OXYGEN [Concomitant]

REACTIONS (5)
  - Diarrhoea [Recovering/Resolving]
  - Muscle spasms [Recovering/Resolving]
  - Vomiting [Recovering/Resolving]
  - Asthenia [Recovering/Resolving]
  - Drug ineffective [Recovering/Resolving]
